FAERS Safety Report 11131567 (Version 1)
Quarter: 2015Q2

REPORT INFORMATION
  Report Type: Spontaneous
  Country: US (occurrence: None)
  Receive Date: 20150521
  Receipt Date: 20150521
  Transmission Date: 20150821
  Serious: Yes (Other)
  Sender: FDA-Public Use
  Company Number: None

PATIENT
  Age: 66 Year
  Sex: Female

DRUGS (1)
  1. LUCENTIS [Suspect]
     Active Substance: RANIBIZUMAB
     Dosage: INJECT INTO LEFT EYE, EVERY 28 DAYS, OTHER
     Route: 047
     Dates: start: 20140826

REACTIONS (4)
  - Injection site pain [None]
  - Balance disorder [None]
  - Blindness [None]
  - Renal failure [None]

NARRATIVE: CASE EVENT DATE: 20150504
